FAERS Safety Report 17026429 (Version 1)
Quarter: 2019Q4

REPORT INFORMATION
  Report Type: Spontaneous
  Country: JP (occurrence: JP)
  Receive Date: 20191113
  Receipt Date: 20191113
  Transmission Date: 20200122
  Serious: Yes (Hospitalization)
  Sender: FDA-Public Use
  Company Number: JP-EISAI MEDICAL RESEARCH-EC-2019-064977

PATIENT
  Age: 70 Year
  Sex: Male

DRUGS (4)
  1. LENVATINIB [Suspect]
     Active Substance: LENVATINIB
     Indication: HEPATOCELLULAR CARCINOMA
     Route: 048
     Dates: start: 20180608, end: 20180621
  2. LENVATINIB [Suspect]
     Active Substance: LENVATINIB
     Route: 048
     Dates: start: 20180926, end: 20181127
  3. LENVATINIB [Suspect]
     Active Substance: LENVATINIB
     Route: 048
     Dates: start: 20180622, end: 20180803
  4. LENVATINIB [Suspect]
     Active Substance: LENVATINIB
     Route: 048
     Dates: start: 20181128, end: 20190327

REACTIONS (5)
  - Decreased appetite [Unknown]
  - Generalised oedema [Unknown]
  - Blood bilirubin increased [Unknown]
  - Palmar-plantar erythrodysaesthesia syndrome [Unknown]
  - Dehydration [Unknown]

NARRATIVE: CASE EVENT DATE: 20180622
